FAERS Safety Report 10369437 (Version 1)
Quarter: 2014Q1

REPORT INFORMATION
  Report Type: Spontaneous
  Country: US (occurrence: None)
  Receive Date: 20140306
  Receipt Date: 20140306
  Transmission Date: 20141002
  Serious: Yes (Other)
  Sender: FDA-Public Use
  Company Number: 163-21880-13091186

PATIENT
  Age: 87 Year
  Sex: Female
  Weight: 54 kg

DRUGS (1)
  1. REVLIMID (LENALIDOMIDE) (CAPSULES) [Suspect]
     Indication: PLASMA CELL MYELOMA
     Dosage: 5 MG, 28 IN 28 D, PO
     Route: 048
     Dates: start: 20070502, end: 2011

REACTIONS (3)
  - Femur fracture [None]
  - Plasma cell myeloma [None]
  - Bone pain [None]
